FAERS Safety Report 9366751 (Version 1)
Quarter: 2013Q2

REPORT INFORMATION
  Report Type: Spontaneous
  Country: US (occurrence: US)
  Receive Date: 20130625
  Receipt Date: 20130625
  Transmission Date: 20140414
  Serious: No
  Sender: FDA-Public Use
  Company Number: US-FOUGERA-2013FO000131

PATIENT
  Sex: Female
  Weight: 79.45 kg

DRUGS (2)
  1. METRONIDAZOLE [Suspect]
     Indication: ACNE
     Route: 061
     Dates: start: 20130430, end: 20130501
  2. ATENOLOL [Concomitant]
     Indication: HYPERTENSION

REACTIONS (4)
  - Acne [Not Recovered/Not Resolved]
  - Condition aggravated [Not Recovered/Not Resolved]
  - Expired drug administered [Recovered/Resolved]
  - Off label use [Recovered/Resolved]
